FAERS Safety Report 4710739-6 (Version None)
Quarter: 2005Q3

REPORT INFORMATION
  Report Type: 
  Country: None (occurrence: None)
  Receive Date: 20050707
  Receipt Date: 20050624
  Transmission Date: 20060218
  Serious: Yes (Hospitalization)
  Sender: FDA-Public Use
  Company Number: 11711

PATIENT
  Age: 64 Year
  Sex: Female

DRUGS (6)
  1. CARBOPLATIN [Suspect]
     Indication: PERITONEAL CARCINOMA
     Route: 042
  2. PACLITAXEL [Suspect]
     Indication: PERITONEAL CARCINOMA
     Dosage: 175 MG/M2
     Route: 042
     Dates: start: 20050221
  3. OMEPRAZOLE [Concomitant]
  4. DILTIAZEM [Concomitant]
  5. METOPROLOL SUCCINATE [Concomitant]
  6. SERTRALINE [Concomitant]
     Route: 048

REACTIONS (5)
  - CHILLS [None]
  - DIARRHOEA [None]
  - LEUKOPENIA [None]
  - SEPSIS [None]
  - VOMITING [None]
